FAERS Safety Report 15015514 (Version 11)
Quarter: 2025Q2

REPORT INFORMATION
  Report Type: Report from Study
  Country: DE (occurrence: DE)
  Receive Date: 20180615
  Receipt Date: 20250616
  Transmission Date: 20250717
  Serious: Yes (Hospitalization, Other)
  Sender: MYLAN
  Company Number: DE-ABBVIE-17K-062-1974136-00

PATIENT
  Age: 82 Year
  Sex: Female
  Weight: 56 kg

DRUGS (157)
  1. PANTOPRAZOLE [Suspect]
     Active Substance: PANTOPRAZOLE
     Indication: Product used for unknown indication
     Dosage: 20 MG, QD
  2. PANTOPRAZOLE [Suspect]
     Active Substance: PANTOPRAZOLE
     Dosage: 1 DOSAGE FORM, QD
  3. LACTULOSE [Suspect]
     Active Substance: LACTULOSE
     Indication: Product used for unknown indication
  4. SIMVASTATIN [Suspect]
     Active Substance: SIMVASTATIN
     Indication: Product used for unknown indication
  5. TORSEMIDE [Suspect]
     Active Substance: TORSEMIDE
     Indication: Product used for unknown indication
     Dosage: 5 MG, QD
     Dates: end: 20170124
  6. TORSEMIDE [Suspect]
     Active Substance: TORSEMIDE
     Dosage: 45 MG, QD
     Dates: start: 20170124, end: 20170124
  7. TORSEMIDE [Suspect]
     Active Substance: TORSEMIDE
     Dosage: 15 MG, QD
     Dates: end: 20170124
  8. CLOPIDOGREL [Suspect]
     Active Substance: CLOPIDOGREL BISULFATE
     Indication: Product used for unknown indication
  9. AMIODARONE [Suspect]
     Active Substance: AMIODARONE
     Indication: Product used for unknown indication
  10. METOPROLOL [Suspect]
     Active Substance: METOPROLOL
     Indication: Product used for unknown indication
  11. VALSARTAN [Suspect]
     Active Substance: VALSARTAN
     Indication: Product used for unknown indication
  12. FENTANYL [Suspect]
     Active Substance: FENTANYL
     Indication: Product used for unknown indication
  13. FENTANYL [Suspect]
     Active Substance: FENTANYL
  14. DICLOFENAC [Suspect]
     Active Substance: DICLOFENAC
     Indication: Product used for unknown indication
     Dosage: 2 DOSAGE FORM, QD
     Dates: start: 201610
  15. DICLOFENAC [Suspect]
     Active Substance: DICLOFENAC
  16. ASPIRIN [Suspect]
     Active Substance: ASPIRIN
     Indication: Product used for unknown indication
  17. HYDROCHLOROTHIAZIDE\LOSARTAN [Suspect]
     Active Substance: HYDROCHLOROTHIAZIDE\LOSARTAN
     Indication: Product used for unknown indication
     Dosage: 1 DOSAGE FORM, QD (100/25 MG)
     Dates: start: 2016
  18. EDOXABAN TOSYLATE [Suspect]
     Active Substance: EDOXABAN TOSYLATE
     Indication: Atrial fibrillation
     Dosage: 30 MG, QD DAILY
  19. BISOPROLOL FUMARATE [Suspect]
     Active Substance: BISOPROLOL FUMARATE
     Indication: Product used for unknown indication
     Dosage: 0.5 MG, QD
     Dates: start: 2016
  20. BISOPROLOL FUMARATE [Suspect]
     Active Substance: BISOPROLOL FUMARATE
     Dosage: 5 MG, QD
     Dates: start: 2016
  21. XIPAMIDE [Suspect]
     Active Substance: XIPAMIDE
     Indication: Product used for unknown indication
  22. TROSPIUM CHLORIDE [Suspect]
     Active Substance: TROSPIUM CHLORIDE
     Indication: Product used for unknown indication
     Dosage: 15 MG, QD
     Dates: end: 20170124
  23. TROSPIUM CHLORIDE [Suspect]
     Active Substance: TROSPIUM CHLORIDE
     Dosage: 45 MG, QD
     Dates: start: 20170124, end: 20170124
  24. HUMIRA [Suspect]
     Active Substance: ADALIMUMAB
     Indication: Rheumatoid arthritis
     Dosage: UNK, QW, SUBCUTANEOUS
     Dates: start: 20120411, end: 20160927
  25. HUMIRA [Suspect]
     Active Substance: ADALIMUMAB
     Dosage: UNK UNK, QW
     Dates: start: 20120111, end: 20160927
  26. HUMIRA [Suspect]
     Active Substance: ADALIMUMAB
     Dosage: 1 DF, SUBCUTANEOUS
     Dates: start: 20120111, end: 20160927
  27. HUMIRA [Suspect]
     Active Substance: ADALIMUMAB
     Dosage: 1 DOSAGE FORM, Q2W
     Dates: start: 20161115
  28. HUMIRA [Suspect]
     Active Substance: ADALIMUMAB
     Dosage: 2 DOSAGE FORM, QW
     Dates: start: 20161115
  29. CHOLECALCIFEROL [Suspect]
     Active Substance: CHOLECALCIFEROL
     Indication: Product used for unknown indication
     Dosage: 20000 IU, QW
  30. MOVICOL [Suspect]
     Active Substance: POLYETHYLENE GLYCOL 3350\POTASSIUM CHLORIDE\SODIUM BICARBONATE\SODIUM CHLORIDE
     Indication: Product used for unknown indication
  31. FUROSEMIDE\SPIRONOLACTONE [Suspect]
     Active Substance: FUROSEMIDE\SPIRONOLACTONE
     Indication: Product used for unknown indication
     Dosage: 1 DOSAGE FORM, QD
     Dates: start: 201610, end: 201610
  32. FENTANYL TRANSDERMAL SYSTEM [Suspect]
     Active Substance: FENTANYL
     Indication: Product used for unknown indication
     Dosage: 75 ?G, QH (PLASTER CHANGE EVERY 3 DAYS)
  33. DICLOFENAC [Suspect]
     Active Substance: DICLOFENAC
     Indication: Product used for unknown indication
     Dosage: 2 DOSAGE FORM, QD
     Dates: start: 201610, end: 201610
  34. TROSPIUM CHLORIDE [Suspect]
     Active Substance: TROSPIUM CHLORIDE
     Indication: Product used for unknown indication
  35. TROSPIUM CHLORIDE [Suspect]
     Active Substance: TROSPIUM CHLORIDE
     Dosage: 15 MILLIGRAM, QD
     Dates: start: 20170124
  36. CLOPIDOGREL BISULFATE [Suspect]
     Active Substance: CLOPIDOGREL BISULFATE
     Indication: Product used for unknown indication
  37. CLOPIDOGREL BISULFATE [Suspect]
     Active Substance: CLOPIDOGREL BISULFATE
  38. CLOPIDOGREL BISULFATE [Suspect]
     Active Substance: CLOPIDOGREL BISULFATE
  39. SODIUM CHLORIDE [Concomitant]
     Active Substance: SODIUM CHLORIDE
     Indication: Product used for unknown indication
     Dosage: 3 DOSAGE FORM, QD
  40. SODIUM CHLORIDE [Concomitant]
     Active Substance: SODIUM CHLORIDE
     Dosage: UNK UNK, QD
  41. SODIUM CHLORIDE [Concomitant]
     Active Substance: SODIUM CHLORIDE
     Dosage: 3 DOSAGE FORM, QD
  42. SODIUM CHLORIDE [Concomitant]
     Active Substance: SODIUM CHLORIDE
  43. SODIUM CHLORIDE [Concomitant]
     Active Substance: SODIUM CHLORIDE
     Dosage: UNK UNK, QD
  44. SODIUM CHLORIDE [Concomitant]
     Active Substance: SODIUM CHLORIDE
  45. SODIUM CHLORIDE [Concomitant]
     Active Substance: SODIUM CHLORIDE
  46. SODIUM CHLORIDE [Concomitant]
     Active Substance: SODIUM CHLORIDE
     Dosage: UNK UNK, QD
  47. SODIUM CHLORIDE [Concomitant]
     Active Substance: SODIUM CHLORIDE
  48. SODIUM CHLORIDE [Concomitant]
     Active Substance: SODIUM CHLORIDE
  49. SODIUM CHLORIDE [Concomitant]
     Active Substance: SODIUM CHLORIDE
     Dosage: UNK UNK, QD
  50. SODIUM CHLORIDE [Concomitant]
     Active Substance: SODIUM CHLORIDE
     Dosage: UNK UNK, QD
  51. SODIUM CHLORIDE [Concomitant]
     Active Substance: SODIUM CHLORIDE
  52. SODIUM CHLORIDE [Concomitant]
     Active Substance: SODIUM CHLORIDE
     Dosage: UNK UNK, QD
  53. SODIUM CHLORIDE [Concomitant]
     Active Substance: SODIUM CHLORIDE
     Dosage: UNK UNK, QD
  54. SODIUM CHLORIDE [Concomitant]
     Active Substance: SODIUM CHLORIDE
     Dosage: UNK UNK, QD
  55. SODIUM CHLORIDE [Concomitant]
     Active Substance: SODIUM CHLORIDE
     Dosage: UNK UNK, QD
  56. SODIUM CHLORIDE [Concomitant]
     Active Substance: SODIUM CHLORIDE
  57. SODIUM CHLORIDE [Concomitant]
     Active Substance: SODIUM CHLORIDE
     Dosage: UNK UNK, QD
  58. SODIUM CHLORIDE [Concomitant]
     Active Substance: SODIUM CHLORIDE
     Dosage: UNK UNK, QD
  59. FOLIC ACID [Concomitant]
     Active Substance: FOLIC ACID
     Indication: Product used for unknown indication
  60. LEVOSIMENDAN [Concomitant]
     Active Substance: LEVOSIMENDAN
     Indication: Product used for unknown indication
  61. TORSEMIDE [Concomitant]
     Active Substance: TORSEMIDE
     Indication: Product used for unknown indication
     Dosage: 5 MG, QD
  62. TORSEMIDE [Concomitant]
     Active Substance: TORSEMIDE
     Indication: Product used for unknown indication
     Dosage: 1 DOSAGE FORM, QD
  63. TORSEMIDE [Concomitant]
     Active Substance: TORSEMIDE
     Dosage: 5 MG, QD
  64. TORSEMIDE [Concomitant]
     Active Substance: TORSEMIDE
  65. CORDAREX [Concomitant]
     Active Substance: AMIODARONE
     Indication: Product used for unknown indication
     Dosage: 200 MG, QD
  66. CORDAREX [Concomitant]
     Active Substance: AMIODARONE
     Indication: Product used for unknown indication
  67. CORDAREX [Concomitant]
     Active Substance: AMIODARONE
     Dosage: 200 MG
  68. CORDAREX [Concomitant]
     Active Substance: AMIODARONE
  69. CORDAREX [Concomitant]
     Active Substance: AMIODARONE
     Dosage: 200 MG, QD
  70. CORDAREX [Concomitant]
     Active Substance: AMIODARONE
     Dosage: 200 MG
  71. CORDAREX [Concomitant]
     Active Substance: AMIODARONE
     Dosage: 200 MG
  72. CORDAREX [Concomitant]
     Active Substance: AMIODARONE
  73. CORDAREX [Concomitant]
     Active Substance: AMIODARONE
  74. CORDAREX [Concomitant]
     Active Substance: AMIODARONE
  75. CORDAREX [Concomitant]
     Active Substance: AMIODARONE
  76. CORDAREX [Concomitant]
     Active Substance: AMIODARONE
  77. CORDAREX [Concomitant]
     Active Substance: AMIODARONE
  78. CORDAREX [Concomitant]
     Active Substance: AMIODARONE
  79. CORDAREX [Concomitant]
     Active Substance: AMIODARONE
  80. CORDAREX [Concomitant]
     Active Substance: AMIODARONE
  81. CORDAREX [Concomitant]
     Active Substance: AMIODARONE
  82. CORDAREX [Concomitant]
     Active Substance: AMIODARONE
  83. CORDAREX [Concomitant]
     Active Substance: AMIODARONE
  84. CORDAREX [Concomitant]
     Active Substance: AMIODARONE
  85. CORDAREX [Concomitant]
     Active Substance: AMIODARONE
  86. CORDAREX [Concomitant]
     Active Substance: AMIODARONE
  87. CORDAREX [Concomitant]
     Active Substance: AMIODARONE
  88. CORDAREX [Concomitant]
     Active Substance: AMIODARONE
  89. CORDAREX [Concomitant]
     Active Substance: AMIODARONE
  90. CORDAREX [Concomitant]
     Active Substance: AMIODARONE
  91. CORDAREX [Concomitant]
     Active Substance: AMIODARONE
  92. CORDAREX [Concomitant]
     Active Substance: AMIODARONE
  93. CORDAREX [Concomitant]
     Active Substance: AMIODARONE
  94. CORDAREX [Concomitant]
     Active Substance: AMIODARONE
  95. CORDAREX [Concomitant]
     Active Substance: AMIODARONE
  96. CORDAREX [Concomitant]
     Active Substance: AMIODARONE
  97. CORDAREX [Concomitant]
     Active Substance: AMIODARONE
  98. CORDAREX [Concomitant]
     Active Substance: AMIODARONE
  99. CORDAREX [Concomitant]
     Active Substance: AMIODARONE
  100. CORDAREX [Concomitant]
     Active Substance: AMIODARONE
  101. CORDAREX [Concomitant]
     Active Substance: AMIODARONE
  102. CORDAREX [Concomitant]
     Active Substance: AMIODARONE
  103. CORDAREX [Concomitant]
     Active Substance: AMIODARONE
  104. CORDAREX [Concomitant]
     Active Substance: AMIODARONE
     Dosage: 200 MG
  105. CORDAREX [Concomitant]
     Active Substance: AMIODARONE
  106. CORDAREX [Concomitant]
     Active Substance: AMIODARONE
  107. CORDAREX [Concomitant]
     Active Substance: AMIODARONE
  108. CORDAREX [Concomitant]
     Active Substance: AMIODARONE
  109. CORDAREX [Concomitant]
     Active Substance: AMIODARONE
  110. CORDAREX [Concomitant]
     Active Substance: AMIODARONE
  111. CORDAREX [Concomitant]
     Active Substance: AMIODARONE
  112. CORDAREX [Concomitant]
     Active Substance: AMIODARONE
  113. CORDAREX [Concomitant]
     Active Substance: AMIODARONE
  114. CORDAREX [Concomitant]
     Active Substance: AMIODARONE
     Dosage: 200 MG, QD
  115. CORDAREX [Concomitant]
     Active Substance: AMIODARONE
  116. CORDAREX [Concomitant]
     Active Substance: AMIODARONE
     Dosage: 200 MG, QD
  117. CORDAREX [Concomitant]
     Active Substance: AMIODARONE
  118. CORDAREX [Concomitant]
     Active Substance: AMIODARONE
  119. CORDAREX [Concomitant]
     Active Substance: AMIODARONE
  120. CORDAREX [Concomitant]
     Active Substance: AMIODARONE
  121. CORDAREX [Concomitant]
     Active Substance: AMIODARONE
  122. CORDAREX [Concomitant]
     Active Substance: AMIODARONE
  123. CORDAREX [Concomitant]
     Active Substance: AMIODARONE
     Dosage: 200 MG, QD
  124. CORDAREX [Concomitant]
     Active Substance: AMIODARONE
     Dosage: 200 MG, QD
  125. CORDAREX [Concomitant]
     Active Substance: AMIODARONE
  126. CORDAREX [Concomitant]
     Active Substance: AMIODARONE
  127. CORDAREX [Concomitant]
     Active Substance: AMIODARONE
  128. CORDAREX [Concomitant]
     Active Substance: AMIODARONE
  129. CORDAREX [Concomitant]
     Active Substance: AMIODARONE
  130. CORDAREX [Concomitant]
     Active Substance: AMIODARONE
  131. CORDAREX [Concomitant]
     Active Substance: AMIODARONE
  132. CORDAREX [Concomitant]
     Active Substance: AMIODARONE
  133. ENOXAPARIN [Concomitant]
     Active Substance: ENOXAPARIN
     Indication: Product used for unknown indication
     Dosage: DAILY DOSE: 0.6 MG MILLGRAM(S) EVERY DAYS
  134. ENOXAPARIN [Concomitant]
     Active Substance: ENOXAPARIN
     Indication: Product used for unknown indication
     Dosage: 0.5 MG, QD
  135. ENOXAPARIN [Concomitant]
     Active Substance: ENOXAPARIN
  136. ENOXAPARIN [Concomitant]
     Active Substance: ENOXAPARIN
     Dosage: 0.6 MG, QD
  137. ENOXAPARIN [Concomitant]
     Active Substance: ENOXAPARIN
     Dosage: 5 MG, QD
  138. ENOXAPARIN [Concomitant]
     Active Substance: ENOXAPARIN
     Dosage: 0.6 MG, QD
  139. ENOXAPARIN [Concomitant]
     Active Substance: ENOXAPARIN
     Dosage: 5 MG, QD
  140. ENOXAPARIN [Concomitant]
     Active Substance: ENOXAPARIN
     Dosage: 0.6 MG, QD
  141. ENOXAPARIN [Concomitant]
     Active Substance: ENOXAPARIN
     Dosage: 5 MG, QD
  142. ENOXAPARIN [Concomitant]
     Active Substance: ENOXAPARIN
  143. ENOXAPARIN [Concomitant]
     Active Substance: ENOXAPARIN
     Dosage: 0.6 MG, QD
  144. ENOXAPARIN [Concomitant]
     Active Substance: ENOXAPARIN
     Dosage: UNK
  145. ENOXAPARIN [Concomitant]
     Active Substance: ENOXAPARIN
  146. ENOXAPARIN [Concomitant]
     Active Substance: ENOXAPARIN
  147. NADROPARIN CALCIUM [Concomitant]
     Active Substance: NADROPARIN CALCIUM
     Indication: Product used for unknown indication
     Dosage: 5700 IU, QD
  148. NADROPARIN CALCIUM [Concomitant]
     Active Substance: NADROPARIN CALCIUM
     Indication: Product used for unknown indication
  149. Riopan [Concomitant]
     Indication: Product used for unknown indication
     Dosage: 4800 MG, QD, ORAL
  150. Riopan [Concomitant]
     Dosage: 1600 MG, QD, ORAL
  151. MAGALDRATE [Concomitant]
     Active Substance: MAGALDRATE
     Indication: Product used for unknown indication
  152. MAGALDRATE [Concomitant]
     Active Substance: MAGALDRATE
     Dosage: 1600  MILLIGRAM, QD
  153. MAGALDRATE [Concomitant]
     Active Substance: MAGALDRATE
  154. MAGALDRATE [Concomitant]
     Active Substance: MAGALDRATE
     Dosage: 4800 MILLIGRAM, QD
  155. MAGALDRATE [Concomitant]
     Active Substance: MAGALDRATE
  156. MAGALDRATE [Concomitant]
     Active Substance: MAGALDRATE
  157. PREDNISOLONE [Concomitant]
     Active Substance: PREDNISOLONE
     Indication: Product used for unknown indication

REACTIONS (54)
  - Cardiogenic shock [Unknown]
  - Groin pain [Not Recovered/Not Resolved]
  - Urinary tract infection [Recovering/Resolving]
  - Diverticulum intestinal [Unknown]
  - Haematuria [Recovering/Resolving]
  - Femoral hernia incarcerated [Recovered/Resolved]
  - Wound infection pseudomonas [Recovering/Resolving]
  - Lymphatic fistula [Recovered/Resolved]
  - Seroma [Unknown]
  - Eructation [Unknown]
  - Pulmonary hypertension [Unknown]
  - Hiatus hernia [Unknown]
  - Inflammatory marker increased [Recovered/Resolved]
  - Faecaloma [Unknown]
  - Left ventricular dysfunction [Recovered/Resolved]
  - Hepatic cyst [Unknown]
  - Mitral valve incompetence [Unknown]
  - Gait disturbance [Unknown]
  - Dyspnoea [Unknown]
  - Coronary artery disease [Unknown]
  - Gastrointestinal haemorrhage [Recovered/Resolved]
  - Cardiovascular disorder [Unknown]
  - Acute kidney injury [Unknown]
  - Hyperkalaemia [Unknown]
  - Aplastic anaemia [Unknown]
  - Postoperative wound infection [Recovered/Resolved]
  - Joint dislocation [Unknown]
  - Urinary retention [Unknown]
  - Wound dehiscence [Recovered/Resolved]
  - Osteopenia [Recovered/Resolved]
  - Arterial haemorrhage [Recovered/Resolved]
  - Pancreatic steatosis [Unknown]
  - Escherichia infection [Unknown]
  - Haemarthrosis [Unknown]
  - Tachyarrhythmia [Unknown]
  - Tricuspid valve incompetence [Unknown]
  - Myelodysplastic syndrome [Unknown]
  - Aortic valve stenosis [Unknown]
  - Hyponatraemia [Unknown]
  - Impaired healing [Recovered/Resolved]
  - Aortic arteriosclerosis [Unknown]
  - General physical health deterioration [Unknown]
  - Decreased appetite [Unknown]
  - Dyspepsia [Unknown]
  - Anuria [Unknown]
  - Myocardial infarction [Recovered/Resolved]
  - Anaemia [Recovered/Resolved]
  - Abdominal discomfort [Unknown]
  - Oedema peripheral [Unknown]
  - Arthralgia [Unknown]
  - Vomiting [Unknown]
  - Peripheral swelling [Recovered/Resolved]
  - Syncope [Unknown]
  - Fall [Recovered/Resolved]

NARRATIVE: CASE EVENT DATE: 20160101
